FAERS Safety Report 5525902-4 (Version None)
Quarter: 2007Q4

REPORT INFORMATION
  Report Type: 
  Country: None (occurrence: None)
  Receive Date: 20071126
  Receipt Date: 20071115
  Transmission Date: 20080405
  Serious: Yes (Hospitalization)
  Sender: FDA-Public Use
  Company Number: DE-ASTRAZENECA-2007PK02385

PATIENT
  Age: 27523 Day
  Sex: Male
  Weight: 118 kg

DRUGS (3)
  1. ATACAND [Suspect]
     Indication: HYPERTENSION
     Route: 048
     Dates: start: 20070707, end: 20070710
  2. KALINOR BRAUSE [Concomitant]
     Dates: start: 20070709, end: 20070710
  3. FURORESE [Concomitant]
     Indication: CARDIAC FAILURE

REACTIONS (1)
  - TOXIC EPIDERMAL NECROLYSIS [None]
